FAERS Safety Report 7060655-2 (Version None)
Quarter: 2010Q4

REPORT INFORMATION
  Report Type: 
  Country: None (occurrence: None)
  Receive Date: 20101025
  Receipt Date: 20101018
  Transmission Date: 20110411
  Serious: Yes (Disabling)
  Sender: FDA-Public Use
  Company Number: US-US-EMD SERONO, INC.-7022887

PATIENT
  Sex: Female

DRUGS (3)
  1. REBIF [Suspect]
     Indication: MULTIPLE SCLEROSIS
     Route: 058
     Dates: start: 20100104
  2. MOTRIN [Concomitant]
     Indication: PREMEDICATION
  3. ZYRTEC [Concomitant]
     Indication: HYPERSENSITIVITY
     Dates: start: 20060101

REACTIONS (4)
  - CENTRAL NERVOUS SYSTEM LESION [None]
  - DRUG ADMINISTRATION ERROR [None]
  - INJECTION SITE HAEMATOMA [None]
  - OPTIC NEURITIS [None]
